FAERS Safety Report 12282673 (Version 2)
Quarter: 2016Q2

REPORT INFORMATION
  Report Type: Report from Study
  Country: US (occurrence: US)
  Receive Date: 20160419
  Receipt Date: 20160518
  Transmission Date: 20160815
  Serious: No
  Sender: FDA-Public Use
  Company Number: US-VERTEX PHARMACEUTICALS-2016-002416

PATIENT
  Sex: Male

DRUGS (18)
  1. CREON [Concomitant]
     Active Substance: PANCRELIPASE AMYLASE\PANCRELIPASE LIPASE\PANCRELIPASE PROTEASE
     Dosage: 5-6 WITH MEALS AND 3-4 WITH SNACKS
  2. SINGULAIR [Concomitant]
     Active Substance: MONTELUKAST SODIUM
     Dosage: 1 DF, QD EVERY EVENING
     Route: 048
  3. VENTOLIN HFA [Concomitant]
     Active Substance: ALBUTEROL SULFATE
     Dosage: 2 PUFFS TWICE A DAY USING A SPACER, EBERY 4 HRS, PRN
     Route: 055
  4. PULMOZYME [Concomitant]
     Active Substance: DORNASE ALFA
     Dosage: 2.5 ML, QD
     Route: 055
  5. GLUCAGON. [Concomitant]
     Active Substance: GLUCAGON
     Dosage: 1 MG, PRN
     Route: 030
  6. HYPERSAL [Concomitant]
     Dosage: 4 ML BY NEBULIZATION,  BID
     Route: 055
  7. FLUTICASONE [Concomitant]
     Active Substance: FLUTICASONE\FLUTICASONE PROPIONATE
     Dosage: 1-2 SPRAYS TO EACH NOSTRIL, QD
     Route: 045
  8. FLUTICASONE PROPIONATE\SALMETEROL XINAFOATE [Concomitant]
     Active Substance: FLUTICASONE PROPIONATE\SALMETEROL XINAFOATE
     Dosage: INHALE 2 PUFFS BY MOUTH, BID
     Route: 055
  9. NOVOLOG [Concomitant]
     Active Substance: INSULIN ASPART
     Dosage: 200 UT, EVERY 2 DAYS FOR INSULIN PUMP
  10. ZYRTEC [Concomitant]
     Active Substance: CETIRIZINE HYDROCHLORIDE
     Dosage: 1 DF, QD
  11. VITAMIN K [Concomitant]
     Active Substance: PHYTONADIONE
     Dosage: 1 DF, 2 TIMES A WEEK AS DIRECTED
     Route: 048
  12. LANSOPRAZOLE. [Concomitant]
     Active Substance: LANSOPRAZOLE
     Dosage: 1 DF, BID
     Route: 048
  13. AQUADEKS [Concomitant]
     Active Substance: MINERALS\VITAMINS
     Dosage: 2 DF, QD
     Route: 048
  14. TOBRAMYCIN. [Concomitant]
     Active Substance: TOBRAMYCIN
     Dosage: 4 DF, BID FOR 28 DAYS, ALTERNATE MONTH THERAPY WITH CAYSTON
     Route: 055
  15. ORKAMBI [Suspect]
     Active Substance: IVACAFTOR\LUMACAFTOR
     Indication: CYSTIC FIBROSIS
     Dosage: UNK
     Route: 048
     Dates: start: 20150809
  16. AZITHROMYCIN ANHYDROUS. [Concomitant]
     Active Substance: AZITHROMYCIN ANHYDROUS
     Dosage: 1 DF, EVERY M, W, F
  17. ERGOCALCIFEROL. [Concomitant]
     Active Substance: ERGOCALCIFEROL
     Dosage: 1 DF, 2 TIMES A WEEK
     Route: 048
  18. CULTURELLE [Concomitant]
     Active Substance: LACTOBACILLUS RHAMNOSUS
     Dosage: 1 DF, QD
     Route: 048

REACTIONS (1)
  - No adverse event [None]
